FAERS Safety Report 6782148-X (Version None)
Quarter: 2010Q2

REPORT INFORMATION
  Report Type: 
  Country: None (occurrence: None)
  Receive Date: 20100621
  Receipt Date: 20100609
  Transmission Date: 20101027
  Serious: Yes (Death)
  Sender: FDA-Public Use
  Company Number: US-PFIZER INC-2010061610

PATIENT
  Sex: Male

DRUGS (5)
  1. VFEND [Suspect]
     Dosage: 200 MG, 2X/DAY
     Dates: start: 20100125, end: 20100506
  2. BACTRIM DS [Concomitant]
     Dosage: UNK
     Dates: start: 20100301
  3. CIPROFLOXACIN [Concomitant]
  4. AUGMENTIN '125' [Concomitant]
  5. ZOSYN [Concomitant]

REACTIONS (1)
  - PULMONARY NECROSIS [None]
